FAERS Safety Report 6388765-3 (Version None)
Quarter: 2009Q4

REPORT INFORMATION
  Report Type: 
  Country: None (occurrence: None)
  Receive Date: 20091001
  Receipt Date: 20090925
  Transmission Date: 20100525
  Serious: Yes (Other)
  Sender: FDA-Public Use
  Company Number: 2009SP016629

PATIENT
  Age: 20 Year
  Sex: Male

DRUGS (2)
  1. NOXAFIL [Suspect]
     Indication: BRONCHOPULMONARY ASPERGILLOSIS
  2. VINCRISTINE [Concomitant]

REACTIONS (3)
  - ESCHERICHIA SEPSIS [None]
  - GUILLAIN-BARRE SYNDROME [None]
  - NEUROTOXICITY [None]
